FAERS Safety Report 5368574-4 (Version None)
Quarter: 2007Q2

REPORT INFORMATION
  Report Type: 
  Country: None (occurrence: None)
  Receive Date: 20070625
  Receipt Date: 20070619
  Transmission Date: 20071010
  Serious: Yes (Death)
  Sender: FDA-Public Use
  Company Number: US-JNJFOC-20070604151

PATIENT
  Age: 71 Year
  Sex: Male

DRUGS (6)
  1. METRONIDAZOLE [Suspect]
     Indication: ANTI-INFECTIVE THERAPY
     Route: 042
  2. METRONIDAZOLE [Suspect]
     Route: 048
  3. CEFAZOLIN [Concomitant]
     Route: 042
  4. CEFAZOLIN [Concomitant]
     Indication: PAIN
     Route: 042
  5. DOPAMINE HCL [Concomitant]
     Indication: HYPOTENSION
     Route: 065
  6. VANCOMYCIN [Concomitant]
     Indication: ANTIBIOTIC PROPHYLAXIS
     Route: 065

REACTIONS (3)
  - CLOSTRIDIUM DIFFICILE COLITIS [None]
  - DISSEMINATED INTRAVASCULAR COAGULATION [None]
  - RESPIRATORY FAILURE [None]
